FAERS Safety Report 9297775 (Version 1)
Quarter: 2013Q2

REPORT INFORMATION
  Report Type: Spontaneous
  Country: US (occurrence: None)
  Receive Date: 20130517
  Receipt Date: 20130517
  Transmission Date: 20140414
  Serious: Yes (Hospitalization)
  Sender: FDA-Public Use
  Company Number: None

PATIENT
  Age: 50 Year
  Sex: Female

DRUGS (4)
  1. NEFAZODONE [Suspect]
     Indication: DEPRESSION
     Dates: start: 20120126, end: 20120322
  2. CELEBREX [Concomitant]
  3. ROPINIROLE [Concomitant]
  4. METHYLTESTOSTERONE W/ ESTROGEN [Concomitant]
     Dates: start: 20120126, end: 20120322

REACTIONS (5)
  - Drug-induced liver injury [None]
  - Cholestasis [None]
  - Fatigue [None]
  - Splenomegaly [None]
  - Hepatocellular injury [None]
